FAERS Safety Report 25858212 (Version 1)
Quarter: 2025Q3

REPORT INFORMATION
  Report Type: Spontaneous
  Country: CN (occurrence: CN)
  Receive Date: 20250929
  Receipt Date: 20250929
  Transmission Date: 20251020
  Serious: Yes (Hospitalization, Other)
  Sender: SANOFI AVENTIS
  Company Number: CN-SA-2025SA284381

PATIENT
  Age: 70 Year
  Sex: Female
  Weight: 60 kg

DRUGS (2)
  1. CLOPIDOGREL BISULFATE [Suspect]
     Active Substance: CLOPIDOGREL BISULFATE
     Indication: Antiplatelet therapy
     Dosage: 1 DF, QD
     Route: 048
     Dates: start: 20250629, end: 20250717
  2. INDOBUFEN [Concomitant]
     Active Substance: INDOBUFEN
     Indication: Antiplatelet therapy
     Dosage: 1 DF, BID
     Route: 048
     Dates: start: 20250629, end: 20250804

REACTIONS (9)
  - Peritonitis [Recovering/Resolving]
  - Melaena [Recovered/Resolved]
  - Gastrointestinal wall thickening [Unknown]
  - Pyrexia [Unknown]
  - Dizziness [Unknown]
  - Abdominal pain [Recovered/Resolved]
  - Abdominal discomfort [Recovered/Resolved]
  - Condition aggravated [Recovered/Resolved]
  - Large intestine perforation [Unknown]

NARRATIVE: CASE EVENT DATE: 20250710
